FAERS Safety Report 24336389 (Version 1)
Quarter: 2024Q3

REPORT INFORMATION
  Report Type: Spontaneous
  Country: JP (occurrence: JP)
  Receive Date: 20240919
  Receipt Date: 20240919
  Transmission Date: 20241016
  Serious: No
  Sender: ROCHE
  Company Number: JP-CHUGAI-2024004174

PATIENT
  Age: 6 Year
  Sex: Male
  Weight: 16.0 kg

DRUGS (2)
  1. TAMIFLU [Suspect]
     Active Substance: OSELTAMIVIR PHOSPHATE
     Indication: Influenza
     Dosage: UNK
     Route: 065
     Dates: start: 202312, end: 202312
  2. TAMIFLU [Suspect]
     Active Substance: OSELTAMIVIR PHOSPHATE
     Dosage: UNK
     Route: 065
     Dates: start: 202401, end: 2024

REACTIONS (2)
  - Influenza [Recovering/Resolving]
  - Influenza B virus test positive [Unknown]

NARRATIVE: CASE EVENT DATE: 20240125
